FAERS Safety Report 24696435 (Version 4)
Quarter: 2025Q3

REPORT INFORMATION
  Report Type: Spontaneous
  Country: US (occurrence: US)
  Receive Date: 20241204
  Receipt Date: 20250816
  Transmission Date: 20251021
  Serious: No
  Sender: ALEXION PHARMACEUTICALS
  Company Number: US-AstraZeneca-CH-00750621A

PATIENT
  Sex: Female

DRUGS (1)
  1. STRENSIQ [Suspect]
     Active Substance: ASFOTASE ALFA
     Indication: Hypophosphatasia
     Route: 065

REACTIONS (8)
  - Enzyme activity increased [Unknown]
  - Disorientation [Recovering/Resolving]
  - Dysarthria [Recovering/Resolving]
  - Balance disorder [Unknown]
  - Body temperature increased [Recovered/Resolved]
  - Confusional state [Unknown]
  - Blood alkaline phosphatase decreased [Unknown]
  - Vitamin B6 increased [Unknown]

NARRATIVE: CASE EVENT DATE: 20241118
